FAERS Safety Report 17623617 (Version 2)
Quarter: 2020Q2

REPORT INFORMATION
  Report Type: Spontaneous
  Country: US (occurrence: US)
  Receive Date: 20200403
  Receipt Date: 20200407
  Transmission Date: 20200713
  Serious: Yes (Hospitalization, Other)
  Sender: FDA-Public Use
  Company Number: US-PFIZER INC-2020118412

PATIENT
  Age: 53 Year
  Sex: Female
  Weight: 58.5 kg

DRUGS (8)
  1. DILANTIN [Interacting]
     Active Substance: PHENYTOIN
     Dosage: UNK
  2. PROZAC [Interacting]
     Active Substance: FLUOXETINE HYDROCHLORIDE
     Indication: DEPRESSION
     Dosage: 20 MG, DAILY
     Route: 048
     Dates: start: 1990
  3. DILANTIN [Interacting]
     Active Substance: PHENYTOIN
     Dosage: 150 MG, 1X/DAY
     Dates: start: 1990
  4. DILANTIN [Interacting]
     Active Substance: PHENYTOIN
     Indication: EPILEPSY
     Dosage: UNK (USED TO DO 300MG, 200MG AND THEN 400MG AND 300MG )
  5. DILANTIN [Interacting]
     Active Substance: PHENYTOIN
     Dosage: 200 MG, DAILY (2 CAPSULES DAILY)
     Route: 048
  6. DILANTIN [Suspect]
     Active Substance: PHENYTOIN
     Indication: TEMPORAL LOBE EPILEPSY
     Dosage: 60 MG, DAILY (30MG, 2 CAPSULES BY MOUTH DAILY)
     Route: 048
  7. DILANTIN [Interacting]
     Active Substance: PHENYTOIN
     Dosage: UNK
  8. DILANTIN [Interacting]
     Active Substance: PHENYTOIN
     Dosage: 160 MG, 1X/DAY
     Dates: start: 2019

REACTIONS (4)
  - Osteoporosis [Not Recovered/Not Resolved]
  - Blood calcium decreased [Not Recovered/Not Resolved]
  - Drug interaction [Not Recovered/Not Resolved]
  - Wrist fracture [Unknown]

NARRATIVE: CASE EVENT DATE: 201706
